FAERS Safety Report 16215696 (Version 1)
Quarter: 2019Q2

REPORT INFORMATION
  Report Type: Spontaneous
  Country: IT (occurrence: IT)
  Receive Date: 20190419
  Receipt Date: 20190419
  Transmission Date: 20190711
  Serious: Yes (Hospitalization)
  Sender: FDA-Public Use
  Company Number: IT-TEVA-2019-IT-1038943

PATIENT
  Age: 40 Year
  Sex: Female

DRUGS (6)
  1. LYRICA [Concomitant]
     Active Substance: PREGABALIN
  2. LAROXYL [Concomitant]
     Active Substance: AMITRIPTYLINE HYDROCHLORIDE
  3. MEDROL [Suspect]
     Active Substance: METHYLPREDNISOLONE
     Dosage: 8 MILLIGRAM DAILY;
     Route: 048
  4. FENTANYL. [Suspect]
     Active Substance: FENTANYL
     Dosage: 200 MICROGRAM DAILY;
     Route: 062
  5. TACHIPIRINA [Concomitant]
     Active Substance: ACETAMINOPHEN
  6. CIPRALEX [Concomitant]
     Active Substance: ESCITALOPRAM OXALATE
     Dosage: 20MILLIGRAM

REACTIONS (1)
  - Sopor [Not Recovered/Not Resolved]

NARRATIVE: CASE EVENT DATE: 20181205
